FAERS Safety Report 14861051 (Version 1)
Quarter: 2018Q2

REPORT INFORMATION
  Report Type: Spontaneous
  Country: GB (occurrence: GB)
  Receive Date: 20180508
  Receipt Date: 20180508
  Transmission Date: 20180711
  Serious: Yes (Other)
  Sender: FDA-Public Use
  Company Number: GB-MYLANLABS-2018M1025248

PATIENT
  Sex: Male

DRUGS (1)
  1. LEVETIRACETAM. [Suspect]
     Active Substance: LEVETIRACETAM
     Indication: PRODUCT USED FOR UNKNOWN INDICATION
     Dosage: UNK

REACTIONS (7)
  - Rib fracture [Unknown]
  - Adverse drug reaction [Unknown]
  - Upper limb fracture [Unknown]
  - Seizure [Unknown]
  - Libido disorder [Unknown]
  - Abnormal dreams [Unknown]
  - Mood altered [Unknown]
